FAERS Safety Report 4707154-8 (Version None)
Quarter: 2005Q3

REPORT INFORMATION
  Report Type: 
  Country: None (occurrence: None)
  Receive Date: 20050701
  Receipt Date: 20050621
  Transmission Date: 20060218
  Serious: Yes (Death)
  Sender: FDA-Public Use
  Company Number: 2005EU001300

PATIENT
  Age: 34 Year
  Sex: Male

DRUGS (9)
  1. PROGRAF [Suspect]
     Indication: LIVER TRANSPLANT
     Dosage: 3.00 MG, BID, ORAL
     Route: 048
     Dates: start: 20050407, end: 20050523
  2. METHYLPREDNISOLONE [Suspect]
     Indication: LIVER TRANSPLANT
     Dosage: 50.00 MG, UID/QD
     Dates: start: 20050407, end: 20050412
  3. PREDNISONE [Suspect]
     Dosage: 11.00 MG, UID/QD
     Dates: start: 20050413, end: 20050523
  4. ACYCLOVIR [Concomitant]
  5. VALACYCLOVIR HCL [Concomitant]
  6. PIPERILLINE (PIPRACILLIN SODIUM) [Concomitant]
  7. MIDAZOLAM HCL [Concomitant]
  8. SUFENTANIL (SUFENTANIL) [Concomitant]
  9. TACROLIMUS CAP/INJ (CODE NOT BROKEN) [Suspect]
     Indication: LIVER TRANSPLANT

REACTIONS (6)
  - ABDOMINAL PAIN [None]
  - ABDOMINAL PAIN UPPER [None]
  - BACK PAIN [None]
  - LOSS OF CONSCIOUSNESS [None]
  - MALAISE [None]
  - RENAL FAILURE [None]
